FAERS Safety Report 4554181-X (Version None)
Quarter: 2005Q1

REPORT INFORMATION
  Report Type: 
  Country: None (occurrence: None)
  Receive Date: 20050118
  Receipt Date: 20050106
  Transmission Date: 20050727
  Serious: Yes (Death)
  Sender: FDA-Public Use
  Company Number: CH-JNJFOC-20050101279

PATIENT
  Age: 75 Year
  Sex: Female
  Weight: 57 kg

DRUGS (7)
  1. REMICADE [Suspect]
     Indication: DRUG USE FOR UNKNOWN INDICATION
     Route: 042
  2. SPIRICORT [Suspect]
     Indication: POLYMYALGIA RHEUMATICA
     Dosage: LONG TERM.
     Route: 049
  3. METHOTREXATE [Suspect]
     Indication: POLYMYALGIA RHEUMATICA
     Dosage: LONG TERM.
     Route: 058
  4. ELTROXIN [Concomitant]
     Indication: HYPOTHYROIDISM
     Dosage: LONG TERM.
     Route: 049
  5. NORVASC [Concomitant]
     Indication: ESSENTIAL HYPERTENSION
     Dosage: LONG TERM.
     Route: 049
  6. CONCOR [Concomitant]
     Indication: ESSENTIAL HYPERTENSION
     Dosage: LONG TERM.
     Route: 049
  7. ASPIRIN [Concomitant]
     Dosage: LONG TERM.
     Route: 049

REACTIONS (2)
  - LYMPHOPENIA [None]
  - PNEUMOCYSTIS JIROVECI PNEUMONIA [None]
